FAERS Safety Report 8052425-3 (Version None)
Quarter: 2012Q1

REPORT INFORMATION
  Report Type: 
  Country: None (occurrence: None)
  Receive Date: 20120118
  Receipt Date: 20120112
  Transmission Date: 20120608
  Serious: Yes (Hospitalization, Other)
  Sender: FDA-Public Use
  Company Number: US-PFIZER INC-2012010465

PATIENT
  Sex: Male
  Weight: 118 kg

DRUGS (3)
  1. NITROSTAT [Concomitant]
     Indication: CHEST PAIN
  2. NITROSTAT [Concomitant]
     Indication: CARDIAC DISORDER
     Dosage: UNK, AS NEEDED
  3. GLYNASE [Suspect]
     Indication: DIABETES MELLITUS
     Dosage: 5 MG, 2X/DAY
     Route: 048

REACTIONS (2)
  - CARDIAC FAILURE CONGESTIVE [None]
  - PNEUMONIA [None]
